FAERS Safety Report 8438608-9 (Version None)
Quarter: 2012Q2

REPORT INFORMATION
  Report Type: 
  Country: None (occurrence: None)
  Receive Date: 20120615
  Receipt Date: 20120608
  Transmission Date: 20120825
  Serious: Yes (Hospitalization, Other)
  Sender: FDA-Public Use
  Company Number: US-PFIZER INC-2010034378

PATIENT
  Sex: Male
  Weight: 30 kg

DRUGS (5)
  1. DILANTIN [Suspect]
     Dosage: 50 MG TABLETS, ONE TABLET IN THE MORNING AND TWO TABLETS AT NIGHT
     Dates: start: 20001204
  2. CEFZIL [Concomitant]
     Indication: PHARYNGITIS STREPTOCOCCAL
     Dosage: UNK
     Dates: start: 20010208, end: 20010201
  3. CEFZIL [Concomitant]
     Indication: OROPHARYNGEAL PAIN
  4. CEFZIL [Concomitant]
     Indication: OTITIS MEDIA
  5. DILANTIN [Suspect]
     Indication: CONVULSION
     Dosage: 50MG TWICE DAILY
     Dates: end: 20001204

REACTIONS (1)
  - STEVENS-JOHNSON SYNDROME [None]
